FAERS Safety Report 14139421 (Version 1)
Quarter: 2017Q4

REPORT INFORMATION
  Report Type: Spontaneous
  Country: US (occurrence: US)
  Receive Date: 20171028
  Receipt Date: 20171028
  Transmission Date: 20180321
  Serious: No
  Sender: FDA-Public Use
  Company Number: US-TEVA-816987USA

PATIENT
  Sex: Female

DRUGS (2)
  1. QVAR [Suspect]
     Active Substance: BECLOMETHASONE DIPROPIONATE
     Indication: RESPIRATORY TRACT CONGESTION
  2. QVAR [Suspect]
     Active Substance: BECLOMETHASONE DIPROPIONATE
     Indication: ASTHMA
     Dates: start: 20170930, end: 20171008

REACTIONS (7)
  - Headache [Not Recovered/Not Resolved]
  - Vision blurred [Not Recovered/Not Resolved]
  - Dysphonia [Not Recovered/Not Resolved]
  - Lip swelling [Not Recovered/Not Resolved]
  - Dysgeusia [Recovering/Resolving]
  - Hypersomnia [Not Recovered/Not Resolved]
  - Lip exfoliation [Not Recovered/Not Resolved]

NARRATIVE: CASE EVENT DATE: 20171001
